FAERS Safety Report 15826039 (Version 1)
Quarter: 2019Q1

REPORT INFORMATION
  Report Type: Spontaneous
  Country: US (occurrence: US)
  Receive Date: 20190115
  Receipt Date: 20190115
  Transmission Date: 20190417
  Serious: Yes (Other)
  Sender: FDA-Public Use
  Company Number: US-REGENERON PHARMACEUTICALS, INC.-2017-29351

PATIENT

DRUGS (1)
  1. EYLEA [Suspect]
     Active Substance: AFLIBERCEPT
     Indication: DIABETIC RETINAL OEDEMA
     Dosage: MONTHLY, OS
     Route: 031
     Dates: start: 201702

REACTIONS (5)
  - Drug ineffective [Unknown]
  - Feeling of despair [Unknown]
  - Blood pressure abnormal [Unknown]
  - Eye disorder [Unknown]
  - Eye swelling [Unknown]
